FAERS Safety Report 21192877 (Version 2)
Quarter: 2022Q3

REPORT INFORMATION
  Report Type: Other
  Country: US (occurrence: None)
  Receive Date: 20220810
  Receipt Date: 20220819
  Transmission Date: 20221027
  Serious: Yes (Death)
  Sender: FDA-Public Use
  Company Number: US-ROCHE-3157330

PATIENT
  Sex: Male

DRUGS (23)
  1. ERIVEDGE [Suspect]
     Active Substance: VISMODEGIB
     Indication: Squamous cell carcinoma of skin
     Dosage: TAKE 1 CAPSULE BY MOUTH EVERY DAY
     Route: 048
  2. ACETAMINOPHEN\HYDROCODONE [Concomitant]
     Active Substance: ACETAMINOPHEN\HYDROCODONE
  3. ONDANSETRON [Concomitant]
     Active Substance: ONDANSETRON
  4. VISMODEGIB [Concomitant]
     Active Substance: VISMODEGIB
  5. ACETAMINOPHEN [Concomitant]
     Active Substance: ACETAMINOPHEN
  6. ALBUTEROL\IPRATROPIUM [Concomitant]
     Active Substance: ALBUTEROL\IPRATROPIUM
  7. AMLODIPINE [Concomitant]
     Active Substance: AMLODIPINE BESYLATE
  8. ATORVASTATIN [Concomitant]
     Active Substance: ATORVASTATIN
  9. CLONIDINE [Concomitant]
     Active Substance: CLONIDINE
  10. FUROSEMIDE [Concomitant]
     Active Substance: FUROSEMIDE
  11. GABAPENTIN [Concomitant]
     Active Substance: GABAPENTIN
  12. GLIMEPIRIDE [Concomitant]
     Active Substance: GLIMEPIRIDE
  13. IBUPROFEN [Concomitant]
     Active Substance: IBUPROFEN
  14. LIDOCAINE [Concomitant]
     Active Substance: LIDOCAINE
  15. LIDOCAINE\PRILOCAINE [Concomitant]
     Active Substance: LIDOCAINE\PRILOCAINE
  16. LORATADINE [Concomitant]
     Active Substance: LORATADINE
  17. LOSARTAN [Concomitant]
     Active Substance: LOSARTAN
  18. MAGNESIUM OXIDE [Concomitant]
     Active Substance: MAGNESIUM OXIDE
  19. METFORMIN [Concomitant]
     Active Substance: METFORMIN HYDROCHLORIDE
  20. METOPROLOL [Concomitant]
     Active Substance: METOPROLOL
  21. NAPROXEN [Concomitant]
     Active Substance: NAPROXEN
  22. PIOGLITAZONE [Concomitant]
     Active Substance: PIOGLITAZONE
  23. POTASSIUM GLUCONATE [Concomitant]
     Active Substance: POTASSIUM GLUCONATE

REACTIONS (2)
  - Death [Fatal]
  - Off label use [Unknown]
